FAERS Safety Report 16171317 (Version 1)
Quarter: 2019Q2

REPORT INFORMATION
  Report Type: Spontaneous
  Country: US (occurrence: US)
  Receive Date: 20190408
  Receipt Date: 20190408
  Transmission Date: 20190711
  Serious: No
  Sender: FDA-Public Use
  Company Number: US-TARO-2018TAR00628

PATIENT
  Age: 59 Year
  Sex: Female

DRUGS (1)
  1. FLUOROURACIL TOPICAL CREAM USP 5% [Suspect]
     Active Substance: FLUOROURACIL
     Dosage: UNK, 2X/DAY IN THE MORNING AND NIGHT BEFORE BED
     Route: 061
     Dates: start: 20180822

REACTIONS (1)
  - Erythema [Not Recovered/Not Resolved]
